FAERS Safety Report 25539898 (Version 2)
Quarter: 2025Q4

REPORT INFORMATION
  Report Type: Spontaneous
  Country: US (occurrence: US)
  Receive Date: 20250710
  Receipt Date: 20251221
  Transmission Date: 20260118
  Serious: No
  Sender: ETHYPHARM
  Company Number: US-ETHYPHARM-2025001791

PATIENT

DRUGS (1)
  1. BUPRENORPHINE [Suspect]
     Active Substance: BUPRENORPHINE
     Indication: Pain
     Dosage: MEAN DAILY STARTING DOSE 12.3 MG FOR ALL PATIENTS

REACTIONS (3)
  - Off label use [Unknown]
  - Withdrawal syndrome [Unknown]
  - Product supply issue [Unknown]
